FAERS Safety Report 7382200-4 (Version None)
Quarter: 2011Q1

REPORT INFORMATION
  Report Type: 
  Country: None (occurrence: None)
  Receive Date: 20110329
  Receipt Date: 20101228
  Transmission Date: 20110831
  Serious: No
  Sender: FDA-Public Use
  Company Number: US-BAYER-2011-025933

PATIENT
  Sex: Male
  Weight: 68 kg

DRUGS (6)
  1. ASPIRIN [Suspect]
     Indication: PRODUCT USED FOR UNKNOWN INDICATION
     Route: 048
  2. IRON COMPLEX [Concomitant]
  3. ONE A DAY MEN'S 50 PLUS ADVANTAGE [Suspect]
     Indication: PRODUCT USED FOR UNKNOWN INDICATION
     Dosage: 1 DF, BID
     Dates: start: 20100101
  4. NEXIUM [Concomitant]
  5. VITAMIN B12 [Concomitant]
  6. PLAVIX [Concomitant]

REACTIONS (1)
  - DIZZINESS [None]
